FAERS Safety Report 10142089 (Version 2)
Quarter: 2014Q3

REPORT INFORMATION
  Report Type: Spontaneous
  Country: CA (occurrence: CA)
  Receive Date: 20140429
  Receipt Date: 20140818
  Transmission Date: 20150326
  Serious: Yes (Hospitalization)
  Sender: FDA-Public Use
  Company Number: PHHY2014CA049304

PATIENT
  Age: 93 Year
  Sex: Male

DRUGS (16)
  1. ESCITALOPRAM [Suspect]
     Active Substance: ESCITALOPRAM OXALATE
     Dosage: 5 MG, PER DAY
  2. TELMISARTAN. [Suspect]
     Active Substance: TELMISARTAN
     Indication: CORONARY ARTERY DISEASE
     Dosage: 80 MG, PER DAY
  3. TELMISARTAN. [Suspect]
     Active Substance: TELMISARTAN
     Dosage: 20 MG, DAILY
  4. PREDNISONE. [Suspect]
     Active Substance: PREDNISONE
     Dosage: 7.5 MG, QD
  5. ESCITALOPRAM [Suspect]
     Active Substance: ESCITALOPRAM OXALATE
     Indication: DEPRESSION
     Dosage: 10 MG, PER DAY
  6. LORAZEPAM. [Suspect]
     Active Substance: LORAZEPAM
     Dosage: 0.5 MG, UNK
  7. LORAZEPAM. [Suspect]
     Active Substance: LORAZEPAM
     Dosage: 0.25 MG, UNK
  8. LOPERAMIDE [Concomitant]
     Active Substance: LOPERAMIDE
     Indication: DIARRHOEA
     Dosage: 1 MG, AS NEEDED
  9. PANTOPRAZOLE [Suspect]
     Active Substance: PANTOPRAZOLE SODIUM
     Indication: GASTROINTESTINAL HAEMORRHAGE
     Dosage: 40 MG, BID
  10. METOPROLOL [Suspect]
     Active Substance: METOPROLOL
     Indication: CORONARY ARTERY DISEASE
     Dosage: 50 MG, PER DAY
  11. METOPROLOL [Suspect]
     Active Substance: METOPROLOL
     Indication: MYOCARDIAL INFARCTION
     Dosage: 25 MG, PER DAY
  12. LORAZEPAM. [Suspect]
     Active Substance: LORAZEPAM
     Indication: INSOMNIA
     Dosage: 1 MG, AT BEDTIME
  13. TAMSULOSIN [Concomitant]
     Active Substance: TAMSULOSIN
     Indication: NOCTURIA
     Dosage: 0.4 MG, AT BEDTIME
  14. METOPROLOL [Suspect]
     Active Substance: METOPROLOL
     Dosage: 12.5 MG, PER DAY
  15. TELMISARTAN. [Suspect]
     Active Substance: TELMISARTAN
     Indication: MYOCARDIAL INFARCTION
     Dosage: 40 MG, DAILY
  16. PREDNISONE. [Suspect]
     Active Substance: PREDNISONE
     Indication: PEMPHIGOID
     Dosage: 5 MG, BID

REACTIONS (8)
  - Orthostatic hypotension [Recovering/Resolving]
  - Osteoporosis [Unknown]
  - Hyponatraemia [Unknown]
  - Fatigue [Unknown]
  - Poor quality sleep [Unknown]
  - Fall [Unknown]
  - Diarrhoea [Recovered/Resolved]
  - Dizziness [Recovered/Resolved]
